FAERS Safety Report 13995685 (Version 2)
Quarter: 2017Q3

REPORT INFORMATION
  Report Type: Spontaneous
  Country: US (occurrence: US)
  Receive Date: 20170921
  Receipt Date: 20170922
  Transmission Date: 20171128
  Serious: No
  Sender: FDA-Public Use
  Company Number: US-PFIZER INC-2017408248

PATIENT
  Age: 68 Year
  Sex: Male
  Weight: 88 kg

DRUGS (4)
  1. SUFENTANIL CITRATE. [Suspect]
     Active Substance: SUFENTANIL CITRATE
     Dosage: UNK UNK, DAILY [52.054 UG/DAY]
  2. FENTANYL CITRATE. [Suspect]
     Active Substance: FENTANYL CITRATE
     Indication: ANKYLOSING SPONDYLITIS
     Dosage: 80.7 UG/HR
     Dates: start: 201502
  3. FENTANYL CITRATE. [Suspect]
     Active Substance: FENTANYL CITRATE
     Dosage: UNK UNK, DAILY [2000,012.7 UG/DAY]
  4. SUFENTANIL CITRATE. [Suspect]
     Active Substance: SUFENTANIL CITRATE
     Indication: ANKYLOSING SPONDYLITIS
     Dosage: 2.087 UG/HR

REACTIONS (1)
  - Blood testosterone decreased [Unknown]
